FAERS Safety Report 10404210 (Version 1)
Quarter: 2014Q1

REPORT INFORMATION
  Report Type: Spontaneous
  Country: US (occurrence: None)
  Receive Date: 20140115
  Receipt Date: 20140115
  Transmission Date: 20141002
  Serious: Yes (Death, Hospitalization)
  Sender: FDA-Public Use
  Company Number: 2013US002493

PATIENT
  Age: 69 Year
  Sex: Female

DRUGS (1)
  1. ICLUSIG (PONATINIB) [Suspect]
     Indication: ACUTE LYMPHOCYTIC LEUKAEMIA
     Route: 048
     Dates: start: 201305, end: 20130806

REACTIONS (2)
  - Neoplasm progression [None]
  - Laboratory test abnormal [None]
